FAERS Safety Report 5388751-6 (Version None)
Quarter: 2007Q3

REPORT INFORMATION
  Report Type: 
  Country: None (occurrence: None)
  Receive Date: 20070712
  Receipt Date: 20070702
  Transmission Date: 20080115
  Serious: Yes (Hospitalization)
  Sender: FDA-Public Use
  Company Number: 2007BI011116

PATIENT
  Age: 72 Year
  Sex: Male

DRUGS (7)
  1. AVONEX [Suspect]
     Indication: MULTIPLE SCLEROSIS
     Dosage: 30 UG; QW; IM
     Route: 030
     Dates: start: 20061101, end: 20070501
  2. NARCOTIC MEDICINE (NOS) [Concomitant]
  3. COUMADIN [Concomitant]
  4. NEURONTIN [Concomitant]
  5. TRILEPTAL [Concomitant]
  6. LYRICA [Concomitant]
  7. GLYCERYL INJECTION [Concomitant]

REACTIONS (8)
  - CEREBRAL INFARCTION [None]
  - CONFUSIONAL STATE [None]
  - DISORIENTATION [None]
  - FACIAL PAIN [None]
  - FALL [None]
  - FEMUR FRACTURE [None]
  - OPTIC ATROPHY [None]
  - SOMNOLENCE [None]
